FAERS Safety Report 9179988 (Version 2)
Quarter: 2013Q2

REPORT INFORMATION
  Report Type: Spontaneous
  Country: US (occurrence: US)
  Receive Date: 20130321
  Receipt Date: 20130423
  Transmission Date: 20140414
  Serious: Yes (Life-Threatening, Other)
  Sender: FDA-Public Use
  Company Number: CHPA2013US004900

PATIENT
  Age: 38 Year
  Sex: Female

DRUGS (1)
  1. TRANSDERM SCOP [Suspect]
     Dosage: UNK, UNK
     Route: 062

REACTIONS (14)
  - Unresponsive to stimuli [Unknown]
  - Mental impairment [Unknown]
  - Dysphemia [Unknown]
  - Blood pressure increased [Unknown]
  - Insomnia [Unknown]
  - Initial insomnia [Unknown]
  - Hypoaesthesia [Unknown]
  - Paraesthesia [Unknown]
  - Palpitations [Unknown]
  - Heart rate increased [Unknown]
  - Vision blurred [Unknown]
  - Restlessness [Unknown]
  - Mydriasis [Unknown]
  - Overdose [Unknown]
